FAERS Safety Report 20633170 (Version 1)
Quarter: 2022Q1

REPORT INFORMATION
  Report Type: Spontaneous
  Country: US (occurrence: None)
  Receive Date: 20220324
  Receipt Date: 20220324
  Transmission Date: 20220423
  Serious: Yes (Other)
  Sender: FDA-Public Use
  Company Number: None

PATIENT
  Age: 36 Year
  Sex: Female
  Weight: 51.75 kg

DRUGS (1)
  1. XYWAV [Suspect]
     Active Substance: CALCIUM OXYBATE\MAGNESIUM OXYBATE\POTASSIUM OXYBATE\SODIUM OXYBATE
     Indication: Narcolepsy
     Dosage: OTHER FREQUENCY : BEDTIME + 2-4H LAT;?
     Route: 048

REACTIONS (7)
  - Paranoia [None]
  - Anxiety [None]
  - Abdominal discomfort [None]
  - Diaphragmatic disorder [None]
  - Muscle spasms [None]
  - Abdominal distension [None]
  - Abdominal distension [None]

NARRATIVE: CASE EVENT DATE: 20210130
